FAERS Safety Report 10979511 (Version 1)
Quarter: 2015Q2

REPORT INFORMATION
  Report Type: Spontaneous
  Country: AU (occurrence: AU)
  Receive Date: 20150402
  Receipt Date: 20150402
  Transmission Date: 20150821
  Serious: Yes (Hospitalization)
  Sender: FDA-Public Use
  Company Number: AU-BAYER-2015-075334

PATIENT

DRUGS (8)
  1. INDOMETHACIN. [Suspect]
     Active Substance: INDOMETHACIN
  2. ATORVASTATIN [Suspect]
     Active Substance: ATORVASTATIN
  3. AMOXICILINA CLAV NORMON [Suspect]
     Active Substance: AMOXICILLIN\CLAVULANATE POTASSIUM
  4. METFORMIN [Suspect]
     Active Substance: METFORMIN HYDROCHLORIDE
  5. RAMIPRIL. [Suspect]
     Active Substance: RAMIPRIL
  6. CEFACLOR. [Suspect]
     Active Substance: CEFACLOR
  7. GLIBENCLAMIDE [Suspect]
     Active Substance: GLYBURIDE
  8. ASPRO [Suspect]
     Active Substance: ASPIRIN\SODIUM BICARBONATE

REACTIONS (1)
  - Drug-induced liver injury [None]
